FAERS Safety Report 9807167 (Version 1)
Quarter: 2014Q1

REPORT INFORMATION
  Report Type: Spontaneous
  Country: US (occurrence: US)
  Receive Date: 20140110
  Receipt Date: 20140110
  Transmission Date: 20141002
  Serious: Yes (Hospitalization)
  Sender: FDA-Public Use
  Company Number: US-BIOGENIDEC-2014BI001190

PATIENT
  Age: 56 Year
  Sex: Female

DRUGS (6)
  1. AVONEX [Suspect]
     Indication: MULTIPLE SCLEROSIS
     Route: 030
     Dates: start: 201101, end: 201207
  2. AVONEX [Suspect]
     Indication: MULTIPLE SCLEROSIS
     Route: 030
     Dates: start: 201207
  3. SOLUMEDROL [Concomitant]
     Route: 042
  4. PEPCID [Concomitant]
  5. LOTREL [Concomitant]
     Indication: HYPERTENSION
  6. INDERAL [Concomitant]
     Indication: HYPERTENSION

REACTIONS (2)
  - Pneumonia [Recovered/Resolved]
  - Vitamin D deficiency [Unknown]
